FAERS Safety Report 9869288 (Version 1)
Quarter: 2014Q1

REPORT INFORMATION
  Report Type: Spontaneous
  Country: FR (occurrence: FR)
  Receive Date: 20140205
  Receipt Date: 20140205
  Transmission Date: 20141002
  Serious: Yes (Hospitalization)
  Sender: FDA-Public Use
  Company Number: FR-ASTRAZENECA-2014SE07411

PATIENT
  Age: 1064 Month
  Sex: Female
  Weight: 45.5 kg

DRUGS (15)
  1. INEXIUM [Suspect]
     Route: 048
     Dates: start: 20131217, end: 20131219
  2. RABEPRAZOLE BASE [Suspect]
     Route: 048
     Dates: end: 20131217
  3. PREDNISOLONE [Concomitant]
  4. OLMETEC [Concomitant]
  5. ICAZ [Concomitant]
  6. IXPRIM [Concomitant]
  7. RIVASTIGMINE [Concomitant]
  8. LEVOTHYROX [Concomitant]
  9. CERIS [Concomitant]
  10. SPAGULAX [Concomitant]
  11. TRANSIPEG [Concomitant]
  12. MESTINON [Concomitant]
  13. XALATAN [Concomitant]
     Route: 047
  14. ACTISKENAN [Concomitant]
  15. SKENAN [Concomitant]

REACTIONS (3)
  - Inappropriate antidiuretic hormone secretion [Unknown]
  - Hyponatraemia [Recovering/Resolving]
  - Fall [Unknown]
